FAERS Safety Report 18628787 (Version 1)
Quarter: 2020Q4

REPORT INFORMATION
  Report Type: Spontaneous
  Country: US (occurrence: US)
  Receive Date: 20201216
  Receipt Date: 20201216
  Transmission Date: 20210114
  Serious: No
  Sender: FDA-Public Use
  Company Number: None

PATIENT
  Age: 83 Year
  Sex: Male

DRUGS (1)
  1. RIVAROXABAN (RIVAROXABAN 20MG TAB) [Suspect]
     Active Substance: RIVAROXABAN
     Indication: ATRIAL FIBRILLATION
     Route: 048

REACTIONS (5)
  - Hypophagia [None]
  - Adenocarcinoma [None]
  - Extra dose administered [None]
  - Gastric haemorrhage [None]
  - Incarcerated inguinal hernia [None]

NARRATIVE: CASE EVENT DATE: 20200831
